FAERS Safety Report 8518036-8 (Version None)
Quarter: 2012Q3

REPORT INFORMATION
  Report Type: 
  Country: None (occurrence: None)
  Receive Date: 20120718
  Receipt Date: 20110915
  Transmission Date: 20120928
  Serious: Yes (Hospitalization)
  Sender: FDA-Public Use
  Company Number: US-BRISTOL-MYERS SQUIBB COMPANY-15975279

PATIENT
  Age: 87 Year
  Sex: Female

DRUGS (2)
  1. COUMADIN [Suspect]
     Indication: CEREBROVASCULAR ACCIDENT
     Dosage: MAY2011
     Dates: start: 20110401, end: 20110701
  2. ASPIRIN [Suspect]

REACTIONS (1)
  - RECTAL HAEMORRHAGE [None]
